FAERS Safety Report 26129210 (Version 1)
Quarter: 2025Q4

REPORT INFORMATION
  Report Type: Spontaneous
  Country: US (occurrence: US)
  Receive Date: 20251208
  Receipt Date: 20251208
  Transmission Date: 20260117
  Serious: No
  Sender: NOVARTIS
  Company Number: US-002147023-NVSC2025US187389

PATIENT
  Sex: Male

DRUGS (1)
  1. RHAPSIDO [Suspect]
     Active Substance: REMIBRUTINIB
     Indication: Urticaria chronic
     Dosage: 25 MG, BID
     Route: 048
     Dates: start: 20251120, end: 20251126

REACTIONS (1)
  - Nausea [Recovered/Resolved]
